FAERS Safety Report 16786537 (Version 1)
Quarter: 2019Q3

REPORT INFORMATION
  Report Type: Report from Study
  Country: HR (occurrence: HR)
  Receive Date: 20190909
  Receipt Date: 20190909
  Transmission Date: 20191005
  Serious: Yes (Hospitalization)
  Sender: FDA-Public Use
  Company Number: HR-JNJFOC-20190907078

PATIENT
  Age: 88 Year
  Sex: Female

DRUGS (1)
  1. TRAMADOL/APAP [Suspect]
     Active Substance: ACETAMINOPHEN\TRAMADOL
     Indication: ANALGESIC THERAPY
     Dosage: UNK
     Route: 048

REACTIONS (5)
  - Stevens-Johnson syndrome [Unknown]
  - Eczema [Unknown]
  - Blister [Unknown]
  - Pemphigoid [Unknown]
  - Rash maculo-papular [Unknown]
